FAERS Safety Report 7564969-9 (Version None)
Quarter: 2011Q2

REPORT INFORMATION
  Report Type: 
  Country: None (occurrence: None)
  Receive Date: 20110622
  Receipt Date: 20110308
  Transmission Date: 20111010
  Serious: Yes (Death)
  Sender: FDA-Public Use
  Company Number: US-MYLANLABS-2011S1004614

PATIENT
  Age: 61 Year
  Sex: Female

DRUGS (11)
  1. LEXAPRO [Concomitant]
  2. DOCUSATE [Concomitant]
  3. ASPIRIN [Concomitant]
  4. LAMOTRIGINE [Concomitant]
  5. CLOZAPINE [Suspect]
     Route: 048
     Dates: end: 20101104
  6. SYNTHROID [Concomitant]
  7. OMEPRAZOLE [Concomitant]
  8. BICARBONATE SODIUM [Concomitant]
  9. LAMOTRIGINE [Concomitant]
  10. CLOZAPINE [Suspect]
     Route: 048
     Dates: end: 20101104
  11. TRAMADOL HCL [Concomitant]

REACTIONS (1)
  - POST PROCEDURAL COMPLICATION [None]
